FAERS Safety Report 8395913-2 (Version None)
Quarter: 2012Q2

REPORT INFORMATION
  Report Type: 
  Country: None (occurrence: None)
  Receive Date: 20120530
  Receipt Date: 20120525
  Transmission Date: 20120825
  Serious: Yes (Death, Other)
  Sender: FDA-Public Use
  Company Number: US-ELI_LILLY_AND_COMPANY-US201205002722

PATIENT
  Sex: Female
  Weight: 158.73 kg

DRUGS (1)
  1. HUMALOG [Suspect]
     Indication: TYPE 2 DIABETES MELLITUS
     Dosage: UNK, UNKNOWN
     Route: 058

REACTIONS (5)
  - RESPIRATORY FAILURE [None]
  - MYOCARDIAL INFARCTION [None]
  - SEPSIS [None]
  - OPEN WOUND [None]
  - GAIT DISTURBANCE [None]
